FAERS Safety Report 7644940-9 (Version None)
Quarter: 2011Q3

REPORT INFORMATION
  Report Type: 
  Country: None (occurrence: None)
  Receive Date: 20110729
  Receipt Date: 20110718
  Transmission Date: 20111222
  Serious: Yes (Other)
  Sender: FDA-Public Use
  Company Number: US-GLAXOSMITHKLINE-A0890724A

PATIENT
  Age: 53 Year
  Sex: Female
  Weight: 69.1 kg

DRUGS (4)
  1. ELTROMBOPAG [Suspect]
     Indication: THROMBOCYTOPENIA
     Dosage: 25MG PER DAY
     Route: 048
     Dates: start: 20091002, end: 20091029
  2. ELTROMBOPAG [Suspect]
     Dosage: 50MG PER DAY
     Route: 048
     Dates: start: 20091030
  3. REBETOL [Suspect]
     Indication: HEPATITIS C
     Route: 048
     Dates: start: 20091030
  4. PEG-INTRON [Suspect]
     Indication: HEPATITIS C
     Dosage: 120MCG WEEKLY
     Route: 058
     Dates: start: 20091030

REACTIONS (1)
  - CATARACT [None]
